FAERS Safety Report 5813295-4 (Version None)
Quarter: 2008Q3

REPORT INFORMATION
  Report Type: 
  Country: None (occurrence: None)
  Receive Date: 20080717
  Receipt Date: 20080709
  Transmission Date: 20090109
  Serious: Yes (Death, Hospitalization)
  Sender: FDA-Public Use
  Company Number: CH-AVENTIS-200816607GDDC

PATIENT
  Age: 59 Year
  Sex: Female

DRUGS (3)
  1. ARAVA [Suspect]
     Route: 048
     Dates: start: 20010101
  2. REMICADE [Suspect]
     Indication: RHEUMATOID ARTHRITIS
     Dosage: DOSE: UNK
     Dates: start: 20070701, end: 20080312
  3. PLAQUENIL                          /00072601/ [Concomitant]
     Route: 048
     Dates: start: 20010101

REACTIONS (4)
  - ALVEOLITIS [None]
  - INTERSTITIAL LUNG DISEASE [None]
  - PNEUMONIA [None]
  - PULMONARY EMBOLISM [None]
